FAERS Safety Report 9772318 (Version 1)
Quarter: 2013Q4

REPORT INFORMATION
  Report Type: Spontaneous
  Country: US (occurrence: None)
  Receive Date: 20131218
  Receipt Date: 20131218
  Transmission Date: 20140711
  Serious: Yes (Other)
  Sender: FDA-Public Use
  Company Number: None

PATIENT
  Age: 61 Year
  Sex: Female
  Weight: 82.1 kg

DRUGS (2)
  1. PRILOSEC [Suspect]
     Indication: BARRETT^S OESOPHAGUS
     Route: 048
     Dates: start: 20130716
  2. PRILOSEC [Suspect]
     Indication: GASTROOESOPHAGEAL REFLUX DISEASE
     Route: 048
     Dates: start: 20130716

REACTIONS (5)
  - Drug ineffective [None]
  - Gastrooesophageal reflux disease [None]
  - Disease recurrence [None]
  - Diarrhoea [None]
  - Abdominal distension [None]
